FAERS Safety Report 8197094-7 (Version None)
Quarter: 2012Q1

REPORT INFORMATION
  Report Type: 
  Country: None (occurrence: None)
  Receive Date: 20120307
  Receipt Date: 20120229
  Transmission Date: 20120608
  Serious: Yes (Hospitalization, Other)
  Sender: FDA-Public Use
  Company Number: AUR-APL-2012-01007

PATIENT
  Age: 56 Year
  Sex: Female
  Weight: 83.77 kg

DRUGS (12)
  1. AXITINB (AXITINIB) [Suspect]
     Indication: METASTATIC MALIGNANT MELANOMA
     Dosage: 2 DOSAGE FORMS (1 DOSAGE FORMS,2 IN 1 D),ORAL ; 6 MG (3 MG,2 IN 1 D),ORAL
     Route: 048
     Dates: start: 20110628
  2. AXITINB (AXITINIB) [Suspect]
     Indication: METASTATIC MALIGNANT MELANOMA
     Dosage: 2 DOSAGE FORMS (1 DOSAGE FORMS,2 IN 1 D),ORAL ; 6 MG (3 MG,2 IN 1 D),ORAL
     Route: 048
     Dates: start: 20111130
  3. CARBOPLATIN [Suspect]
     Indication: METASTATIC MALIGNANT MELANOMA
     Dosage: 26.9048 MG (565 MG,1 IN 3 WK),INTRAVENOUS
     Route: 042
     Dates: start: 20111020, end: 20111020
  4. BENADRYL [Concomitant]
  5. MEGACE [Suspect]
     Indication: DECREASED APPETITE
     Dosage: 5 CC (5, 4 IN 1 D),ORAL
     Route: 048
     Dates: start: 20110927
  6. MS CONTIN [Concomitant]
  7. METOPROLOL TARTRATE [Suspect]
     Indication: HYPERTENSION
     Dosage: 25 MG (25 MG,1 IN 1 D),ORAL
     Route: 048
     Dates: start: 20110916
  8. WELLBUTRIN [Concomitant]
  9. CELECOXIB [Suspect]
     Indication: ARTHRITIS
     Dosage: 200 MG (200 MG,1 IN 1 D),ORAL ; 200 MG (200 MG,1 IN 1 D),ORAL
     Route: 048
     Dates: start: 20070101, end: 20111101
  10. PREMPRO [Suspect]
     Indication: ARTHRITIS
     Dosage: 0.625MG/2.5MG (1 IN 1 D),ORAL
     Route: 048
     Dates: start: 20070101
  11. ZOFRAN [Concomitant]
  12. PACLITAXEL [Suspect]
     Indication: METASTATIC MALIGNANT MELANOMA
     Dosage: 10.2381 MG (215 MG,1 IN 3 WK),INTRAVENOUS
     Route: 042
     Dates: start: 20111020, end: 20111020

REACTIONS (6)
  - UTERINE LEIOMYOMA [None]
  - DECREASED APPETITE [None]
  - GASTROOESOPHAGEAL REFLUX DISEASE [None]
  - VAGINAL HAEMORRHAGE [None]
  - HYPOKALAEMIA [None]
  - HAEMORRHAGIC ANAEMIA [None]
